FAERS Safety Report 11388034 (Version 5)
Quarter: 2015Q4

REPORT INFORMATION
  Report Type: Report from Study
  Country: CA (occurrence: CA)
  Receive Date: 20150817
  Receipt Date: 20151001
  Transmission Date: 20160304
  Serious: Yes (Other)
  Sender: FDA-Public Use
  Company Number: CA-UCBSA-2015025983

PATIENT
  Age: 0 Year
  Sex: Male
  Weight: 3.94 kg

DRUGS (14)
  1. MULTIVITAMIN [Concomitant]
     Active Substance: VITAMINS
     Indication: PREGNANCY
     Dosage: 1, ONCE DAILY
     Route: 064
     Dates: end: 20150802
  2. CERTOLIZUMAB PEGOL RA [Suspect]
     Active Substance: CERTOLIZUMAB PEGOL
     Dosage: 200 MG, EV 2 WEEKS(QOW)
     Route: 063
     Dates: start: 201508
  3. VITAMIN B12 [Concomitant]
     Active Substance: CYANOCOBALAMIN
     Indication: PREGNANCY
     Dosage: 1, RWICE WEEKLY
     Route: 064
     Dates: end: 20150802
  4. CHROMIUM [Concomitant]
     Active Substance: CHROMIC CHLORIDE\CHROMIUM
     Indication: PREGNANCY
     Dosage: 1 TWICE WEEKLY
     Route: 064
     Dates: end: 20150802
  5. ZINC [Concomitant]
     Active Substance: ZINC\ZINC CHLORIDE
     Indication: PREGNANCY
     Dosage: 1 TWICE WEEKLY
     Route: 064
     Dates: end: 20150802
  6. VENTOLIN [Concomitant]
     Active Substance: ALBUTEROL SULFATE
     Indication: ASTHMA
     Dosage: TWICE DAILY
     Route: 064
     Dates: end: 20150802
  7. NOVORAPID [Concomitant]
     Active Substance: INSULIN ASPART
     Indication: TYPE 1 DIABETES MELLITUS
     Dosage: CONTINUOOSLY PUMP
     Route: 064
     Dates: end: 20150802
  8. DEXILANT [Concomitant]
     Active Substance: DEXLANSOPRAZOLE
     Indication: GASTROOESOPHAGEAL REFLUX DISEASE
     Dosage: AS NEEDED
     Route: 064
     Dates: end: 20150802
  9. FERAMAX [Concomitant]
     Active Substance: IRON\POLYSACCHARIDES
     Indication: RED BLOOD CELL ABNORMALITY
     Dosage: 150 MG, ONCE DAILY (QD)
     Route: 064
     Dates: end: 20150802
  10. CERTOLIZUMAB PEGOL RA [Suspect]
     Active Substance: CERTOLIZUMAB PEGOL
     Indication: RHEUMATOID ARTHRITIS
     Dosage: 200 MG, EV 2 WEEKS(QOW)
     Route: 064
     Dates: start: 201411, end: 20150802
  11. PRENATAL VITAMINS [Concomitant]
     Active Substance: VITAMINS
     Indication: PREGNANCY
     Dosage: 1, ONCE DAILY
     Route: 064
     Dates: end: 20150802
  12. MAGNESIUM [Concomitant]
     Active Substance: MAGNESIUM
     Indication: PREGNANCY
     Dosage: 1 TWICE WEEKLY
     Route: 064
     Dates: end: 20150802
  13. FOLIC ACID. [Concomitant]
     Active Substance: FOLIC ACID
     Indication: PREGNANCY
     Dosage: 5 MG, ONCE DAILY (QD)
     Route: 064
     Dates: end: 20150802
  14. ALVESCO [Concomitant]
     Active Substance: CICLESONIDE
     Indication: ASTHMA
     Dosage: TWICE DAILY
     Route: 064
     Dates: end: 20150802

REACTIONS (5)
  - Exposure during breast feeding [Unknown]
  - Premature baby [Recovered/Resolved]
  - Large for dates baby [Unknown]
  - Blood glucose abnormal [Recovered/Resolved]
  - Foetal exposure during pregnancy [Unknown]

NARRATIVE: CASE EVENT DATE: 201411
